FAERS Safety Report 21425638 (Version 1)
Quarter: 2022Q4

REPORT INFORMATION
  Report Type: Spontaneous
  Country: NO (occurrence: NO)
  Receive Date: 20221008
  Receipt Date: 20221008
  Transmission Date: 20230113
  Serious: Yes (Life-Threatening, Hospitalization, Disabling, Other)
  Sender: FDA-Public Use
  Company Number: NO-NOVARTISPH-NVSC2022NO227615

PATIENT
  Age: 44 Year
  Sex: Female

DRUGS (2)
  1. METHOTREXATE [Suspect]
     Active Substance: METHOTREXATE
     Indication: Non-Hodgkin^s lymphoma
     Dosage: UNK
     Route: 037
     Dates: start: 20200324, end: 20200428
  2. VINCRISTINE [Concomitant]
     Active Substance: VINCRISTINE
     Indication: Non-Hodgkin^s lymphoma
     Dosage: UNK
     Route: 042

REACTIONS (12)
  - Cerebral venous sinus thrombosis [Recovered/Resolved]
  - Epilepsy [Recovered/Resolved]
  - Somnolence [Unknown]
  - Pulmonary embolism [Unknown]
  - Cerebrovascular accident [Unknown]
  - Visual impairment [Unknown]
  - Balance disorder [Unknown]
  - Aphasia [Unknown]
  - Cognitive disorder [Unknown]
  - Nausea [Unknown]
  - Vomiting [Unknown]
  - Headache [Unknown]

NARRATIVE: CASE EVENT DATE: 20200301
